FAERS Safety Report 10211600 (Version 1)
Quarter: 2014Q2

REPORT INFORMATION
  Report Type: Spontaneous
  Country: US (occurrence: US)
  Receive Date: 20140602
  Receipt Date: 20140602
  Transmission Date: 20141212
  Serious: No
  Sender: FDA-Public Use
  Company Number: US-PFIZER INC-2014149851

PATIENT
  Age: 60 Year
  Sex: Female
  Weight: 90.7 kg

DRUGS (9)
  1. LYRICA [Suspect]
     Indication: DIABETIC NEUROPATHY
     Dosage: 200 MG, 3X/DAY
     Route: 048
     Dates: start: 2006, end: 2010
  2. LYRICA [Suspect]
     Indication: NERVE INJURY
  3. LYRICA [Suspect]
     Indication: STRESS
  4. BENAZEPRIL [Concomitant]
     Indication: HYPERTENSION
     Dosage: UNK
  5. ROSUVASTATIN [Concomitant]
     Dosage: UNK
  6. LEVOXYL [Concomitant]
     Indication: HYPOTHYROIDISM
     Dosage: UNK
  7. CITALOPRAM [Concomitant]
     Dosage: UNK
  8. METFORMIN [Concomitant]
     Indication: DIABETES MELLITUS
     Dosage: UNK
  9. NOVOLOL FLEXPEN [Concomitant]
     Indication: DIABETES MELLITUS
     Dosage: UNK, AS NEEDED

REACTIONS (2)
  - Malaise [Unknown]
  - Pain [Unknown]
